FAERS Safety Report 8225518-5 (Version None)
Quarter: 2012Q1

REPORT INFORMATION
  Report Type: 
  Country: None (occurrence: None)
  Receive Date: 20120321
  Receipt Date: 20120313
  Transmission Date: 20120608
  Serious: Yes (Death, Hospitalization)
  Sender: FDA-Public Use
  Company Number: GB-JNJFOC-20111000674

PATIENT
  Age: 25 Year
  Sex: Female

DRUGS (7)
  1. COLD AND COUGH MEDICINE [Suspect]
     Indication: NASOPHARYNGITIS
  2. LEMSIP WITH PHENYLEPHRINE [Suspect]
     Indication: NASOPHARYNGITIS
     Route: 048
     Dates: start: 20101201
  3. ACETAMINOPHEN [Suspect]
     Route: 048
  4. IBUPROFEN [Suspect]
     Indication: NASOPHARYNGITIS
     Route: 048
  5. ANTIBIOTICS [Concomitant]
     Indication: LOWER RESPIRATORY TRACT INFECTION
     Route: 048
  6. ACETAMINOPHEN AND CODEINE PHOSPHATE [Concomitant]
     Indication: PHARYNGITIS STREPTOCOCCAL
     Route: 048
  7. ACETAMINOPHEN [Suspect]
     Indication: NASOPHARYNGITIS
     Route: 048
     Dates: start: 20101201

REACTIONS (16)
  - DRUG ADMINISTRATION ERROR [None]
  - ABNORMAL BEHAVIOUR [None]
  - YELLOW SKIN [None]
  - PHARYNGITIS STREPTOCOCCAL [None]
  - VOMITING [None]
  - GAIT DISTURBANCE [None]
  - OVERDOSE [None]
  - CHROMATURIA [None]
  - RESTLESSNESS [None]
  - CYST [None]
  - DYSPHAGIA [None]
  - MEMORY IMPAIRMENT [None]
  - HALLUCINATION [None]
  - JAUNDICE [None]
  - HEPATIC FAILURE [None]
  - APHTHOUS STOMATITIS [None]
